FAERS Safety Report 6298849-6 (Version None)
Quarter: 2009Q3

REPORT INFORMATION
  Report Type: 
  Country: None (occurrence: None)
  Receive Date: 20090806
  Receipt Date: 20071001
  Transmission Date: 20100115
  Serious: Yes (Other)
  Sender: FDA-Public Use
  Company Number: US-ASTRAZENECA-2007UW16493

PATIENT
  Age: 17055 Day
  Sex: Male
  Weight: 96 kg

DRUGS (25)
  1. SEROQUEL [Suspect]
     Indication: MENTAL DISORDER
     Route: 048
     Dates: start: 20000101, end: 20060101
  2. SEROQUEL [Suspect]
     Indication: AFFECTIVE DISORDER
     Route: 048
     Dates: start: 20000101, end: 20060101
  3. SEROQUEL [Suspect]
     Dosage: 25 MG TO 800 MG
     Route: 048
     Dates: start: 20020704
  4. SEROQUEL [Suspect]
     Dosage: 25 MG TO 800 MG
     Route: 048
     Dates: start: 20020704
  5. DEPAKOTE [Suspect]
     Dates: start: 19980120, end: 19981002
  6. DEPAKOTE [Suspect]
     Dates: start: 20030105
  7. TRAZODONE HCL [Concomitant]
     Dosage: 150 MG TO 250 MG
     Route: 048
     Dates: start: 19980120
  8. HYDROXYZINE HCL [Concomitant]
     Route: 048
     Dates: start: 20031119
  9. ALBUTEROL [Concomitant]
     Dosage: INHALE TWO PUFFS ORALLY FOUR TIMES DAILY
     Route: 048
     Dates: start: 20020706
  10. NAPROSYN [Concomitant]
     Indication: PAIN
     Route: 048
     Dates: start: 20030927
  11. BENADRYL [Concomitant]
     Route: 048
     Dates: start: 20030227
  12. ULTRAM [Concomitant]
     Route: 048
     Dates: start: 20020704
  13. ZOLOFT [Concomitant]
     Dates: start: 19980120
  14. ZYPREXA [Concomitant]
     Dates: start: 19980120
  15. ALLEGRA [Concomitant]
     Dosage: 180 MG, AS REQUIRED (P.R.N.)
     Dates: start: 20020716
  16. CELEXA [Concomitant]
     Dates: start: 20041206
  17. DOXEPIN HCL [Concomitant]
     Route: 048
     Dates: start: 20041026
  18. GLYBURIDE [Concomitant]
     Route: 048
     Dates: start: 20041026, end: 20050923
  19. HUMALOG [Concomitant]
     Route: 058
     Dates: start: 20041026
  20. ESCITALOPRAM [Concomitant]
     Route: 048
     Dates: start: 20041026
  21. METFORMIN [Concomitant]
     Route: 048
     Dates: start: 20041026
  22. PRILOSEC [Concomitant]
     Route: 048
     Dates: start: 20041026
  23. RANITIDINE [Concomitant]
     Route: 048
     Dates: start: 20041026
  24. PAXIL [Concomitant]
     Dosage: 20 MG TO 40 MG
     Route: 048
     Dates: start: 20020704
  25. LITHIUM CARBONATE [Concomitant]
     Route: 048
     Dates: start: 19980120

REACTIONS (11)
  - ACUTE HEPATIC FAILURE [None]
  - BILIARY CIRRHOSIS [None]
  - CHOLANGITIS SCLEROSING [None]
  - DIABETES MELLITUS [None]
  - DIABETIC EYE DISEASE [None]
  - HAEMOCHROMATOSIS [None]
  - HEPATITIS C [None]
  - HYPERGLYCAEMIA [None]
  - LIVER DISORDER [None]
  - TRANSAMINASES INCREASED [None]
  - TYPE 2 DIABETES MELLITUS [None]
